FAERS Safety Report 20429163 (Version 1)
Quarter: 2022Q1

REPORT INFORMATION
  Report Type: Spontaneous
  Country: IL (occurrence: IL)
  Receive Date: 20220204
  Receipt Date: 20220204
  Transmission Date: 20220423
  Serious: Yes (Hospitalization, Other)
  Sender: FDA-Public Use
  Company Number: IL-009507513-2202ISR000162

PATIENT
  Age: 64 Year
  Sex: Female

DRUGS (1)
  1. MOLNUPIRAVIR [Suspect]
     Active Substance: MOLNUPIRAVIR
     Indication: COVID-19 treatment
     Dosage: UNK
     Route: 048
     Dates: start: 20220126

REACTIONS (4)
  - Confusional state [Unknown]
  - Ammonia increased [Unknown]
  - Feeling abnormal [Recovering/Resolving]
  - Arterial injury [Unknown]

NARRATIVE: CASE EVENT DATE: 20220127
